FAERS Safety Report 22810289 (Version 3)
Quarter: 2025Q2

REPORT INFORMATION
  Report Type: Spontaneous
  Country: US (occurrence: US)
  Receive Date: 20230810
  Receipt Date: 20250616
  Transmission Date: 20250717
  Serious: No
  Sender: PFIZER
  Company Number: US-PFIZER INC-PV202300137118

PATIENT
  Age: 65 Year
  Sex: Female
  Weight: 87.9 kg

DRUGS (1)
  1. ERYTHROMYCIN [Suspect]
     Active Substance: ERYTHROMYCIN

REACTIONS (3)
  - Drug hypersensitivity [Unknown]
  - Gastrointestinal disorder [Unknown]
  - Rash [Unknown]
